FAERS Safety Report 5072616-3 (Version None)
Quarter: 2006Q3

REPORT INFORMATION
  Report Type: 
  Country: None (occurrence: None)
  Receive Date: 20060807
  Receipt Date: 20060607
  Transmission Date: 20061208
  Serious: Yes (Hospitalization)
  Sender: FDA-Public Use
  Company Number: US-GLAXOSMITHKLINE-A0608218A

PATIENT
  Age: 55 Year
  Sex: Female

DRUGS (1)
  1. AVANDIA [Suspect]
     Route: 048
     Dates: start: 20000530, end: 20001001

REACTIONS (6)
  - DISABILITY [None]
  - FEAR [None]
  - HEADACHE [None]
  - MACULAR OEDEMA [None]
  - VISUAL ACUITY REDUCED [None]
  - VITRECTOMY [None]
